FAERS Safety Report 7345394-2 (Version None)
Quarter: 2011Q1

REPORT INFORMATION
  Report Type: 
  Country: None (occurrence: None)
  Receive Date: 20110310
  Receipt Date: 20110308
  Transmission Date: 20110831
  Serious: Yes (Death, Hospitalization, Other)
  Sender: FDA-Public Use
  Company Number: US-ABBOTT-11P-163-0709881-00

PATIENT
  Age: 80 Year
  Sex: Male

DRUGS (1)
  1. HUMIRA [Suspect]
     Indication: CROHN'S DISEASE
     Dates: start: 20100901

REACTIONS (13)
  - OEDEMA PERIPHERAL [None]
  - ASTHENIA [None]
  - HERPES ZOSTER [None]
  - TUBERCULOSIS GASTROINTESTINAL [None]
  - DEATH [None]
  - MALAISE [None]
  - LIVER DISORDER [None]
  - DRUG INTOLERANCE [None]
  - PULMONARY TUBERCULOSIS [None]
  - SEPSIS [None]
  - DEPRESSED LEVEL OF CONSCIOUSNESS [None]
  - FATIGUE [None]
  - FUNGAL INFECTION [None]
